FAERS Safety Report 7041318-6 (Version None)
Quarter: 2010Q4

REPORT INFORMATION
  Report Type: 
  Country: None (occurrence: None)
  Receive Date: 20101013
  Receipt Date: 20100923
  Transmission Date: 20110411
  Serious: Yes (Other)
  Sender: FDA-Public Use
  Company Number: FR-JNJFOC-20101002844

PATIENT
  Age: 30 Year
  Sex: Male

DRUGS (2)
  1. TOPALGIC [Suspect]
     Indication: PAIN
     Route: 065
  2. OPIOIDS [Concomitant]

REACTIONS (1)
  - THERAPEUTIC RESPONSE UNEXPECTED [None]
